FAERS Safety Report 5094211-2 (Version None)
Quarter: 2006Q3

REPORT INFORMATION
  Report Type: 
  Country: None (occurrence: None)
  Receive Date: 20060830
  Receipt Date: 20060830
  Transmission Date: 20061208
  Serious: Yes (Other)
  Sender: FDA-Public Use
  Company Number: None

PATIENT
  Age: 66 Year
  Sex: Male
  Weight: 122 kg

DRUGS (1)
  1. ZEVALIN [Suspect]
     Indication: NON-HODGKIN'S LYMPHOMA REFRACTORY
     Dosage: 5.27 MCI IN-111 ZEVALIN X 1 IV
     Route: 042
     Dates: start: 20060822

REACTIONS (3)
  - DYSURIA [None]
  - RASH ERYTHEMATOUS [None]
  - RASH PUSTULAR [None]
